FAERS Safety Report 6967989-8 (Version None)
Quarter: 2010Q3

REPORT INFORMATION
  Report Type: 
  Country: None (occurrence: None)
  Receive Date: 20100907
  Receipt Date: 20100831
  Transmission Date: 20110219
  Serious: Yes (Life-Threatening, Other)
  Sender: FDA-Public Use
  Company Number: A0877343A

PATIENT
  Age: 63 Year
  Sex: Male

DRUGS (3)
  1. PROMACTA [Suspect]
     Dosage: 75MG PER DAY
     Route: 048
     Dates: start: 20090113, end: 20100402
  2. RITUXAN [Concomitant]
     Dates: start: 20100325, end: 20100604
  3. CORTICOSTEROIDS [Concomitant]

REACTIONS (9)
  - ABDOMINAL PAIN [None]
  - ANAEMIA [None]
  - BONE PAIN [None]
  - CHRONIC MYELOMONOCYTIC LEUKAEMIA [None]
  - DRUG INEFFECTIVE [None]
  - GRANULOCYTOSIS [None]
  - LYMPHADENOPATHY [None]
  - MONOCYTE COUNT INCREASED [None]
  - WEIGHT DECREASED [None]
